FAERS Safety Report 9857386 (Version 1)
Quarter: 2014Q1

REPORT INFORMATION
  Report Type: Spontaneous
  Country: US (occurrence: US)
  Receive Date: 20140131
  Receipt Date: 20140131
  Transmission Date: 20141002
  Serious: Yes (Hospitalization)
  Sender: FDA-Public Use
  Company Number: US-ROCHE-1341750

PATIENT
  Age: 74 Year
  Sex: Male
  Weight: 54.48 kg

DRUGS (1)
  1. XELODA [Suspect]
     Indication: LUNG NEOPLASM MALIGNANT
     Route: 048
     Dates: start: 20130722, end: 20131022

REACTIONS (2)
  - Vomiting [Unknown]
  - Disease progression [Unknown]
